FAERS Safety Report 6931997-3 (Version None)
Quarter: 2010Q3

REPORT INFORMATION
  Report Type: 
  Country: None (occurrence: None)
  Receive Date: 20100812
  Receipt Date: 20090115
  Transmission Date: 20110219
  Serious: No
  Sender: FDA-Public Use
  Company Number: 2009-01027

PATIENT
  Sex: Female

DRUGS (1)
  1. ZICAM COLD REMEDY ORAL MIST [Suspect]
     Dosage: 3 DOSES X 1 DAY
     Dates: start: 20090109, end: 20090110

REACTIONS (2)
  - AGEUSIA [None]
  - ANOSMIA [None]
